FAERS Safety Report 7218191-6 (Version None)
Quarter: 2011Q1

REPORT INFORMATION
  Report Type: 
  Country: None (occurrence: None)
  Receive Date: 20110110
  Receipt Date: 20110104
  Transmission Date: 20110831
  Serious: Yes (Hospitalization)
  Sender: FDA-Public Use
  Company Number: FR-PFIZER INC-2011001085

PATIENT
  Age: 82 Year
  Sex: Male
  Weight: 82 kg

DRUGS (12)
  1. ALDACTONE [Concomitant]
  2. VANCOMYCIN [Concomitant]
  3. FORADIL [Concomitant]
  4. DIFFU K [Concomitant]
  5. VENTOLIN [Concomitant]
  6. PULMICORT [Concomitant]
  7. SPIRIVA [Concomitant]
  8. PREVISCAN [Concomitant]
  9. CORDARONE [Concomitant]
  10. LASIX [Concomitant]
  11. ZYVOX [Suspect]
     Indication: ENDOCARDITIS
     Dosage: 600 MG, 2X/DAY
     Route: 048
     Dates: start: 20101029, end: 20101117
  12. AERIUS [Concomitant]

REACTIONS (3)
  - THROMBOCYTOPENIA [None]
  - ANAEMIA [None]
  - LYMPHOPENIA [None]
